FAERS Safety Report 8946156 (Version 2)
Quarter: 2012Q4

REPORT INFORMATION
  Report Type: 
  Country: HR (occurrence: HR)
  Receive Date: 20121204
  Receipt Date: 20121219
  Transmission Date: 20130627
  Serious: Yes (Death)
  Sender: FDA-Public Use
  Company Number: HR-ELI_LILLY_AND_COMPANY-HR201211007049

PATIENT
  Sex: Male

DRUGS (2)
  1. ZYPADHERA [Suspect]
     Indication: SCHIZOPHRENIA
     Dosage: 300 mg, 2/M
     Route: 030
     Dates: start: 201209
  2. HALDOL [Concomitant]
     Indication: SCHIZOPHRENIA
     Dosage: 5 mg, bid

REACTIONS (2)
  - Death [Fatal]
  - Road traffic accident [Fatal]
